FAERS Safety Report 6655743-6 (Version None)
Quarter: 2010Q1

REPORT INFORMATION
  Report Type: 
  Country: None (occurrence: None)
  Receive Date: 20100326
  Receipt Date: 20100326
  Transmission Date: 20100710
  Serious: Yes (Life-Threatening, Other)
  Sender: FDA-Public Use
  Company Number: None

PATIENT
  Age: 80 Year
  Sex: Female
  Weight: 58.0604 kg

DRUGS (1)
  1. COREG [Suspect]
     Indication: HYPERTENSION
     Dosage: 6.25 MG (2.5 2XD MOUTH; 1+2XD; 1 3X D; 1 3XD;  CR 40MG 2XD ; CR
     Route: 048
     Dates: start: 20081024, end: 20100201

REACTIONS (10)
  - ABDOMINAL PAIN UPPER [None]
  - CHOKING SENSATION [None]
  - DIARRHOEA [None]
  - DIZZINESS [None]
  - DYSPHAGIA [None]
  - HEADACHE [None]
  - HYPERSENSITIVITY [None]
  - NAUSEA [None]
  - ULCER HAEMORRHAGE [None]
  - VISION BLURRED [None]
